FAERS Safety Report 18097932 (Version 2)
Quarter: 2020Q3

REPORT INFORMATION
  Report Type: Spontaneous
  Country: IT (occurrence: IT)
  Receive Date: 20200731
  Receipt Date: 20200827
  Transmission Date: 20201103
  Serious: Yes (Life-Threatening, Hospitalization)
  Sender: FDA-Public Use
  Company Number: IT-STRIDES ARCOLAB LIMITED-2020SP008653

PATIENT
  Age: 52 Year
  Sex: Female

DRUGS (5)
  1. TACROLIMUS. [Suspect]
     Active Substance: TACROLIMUS
     Indication: RENAL TRANSPLANT
     Dosage: UNK (MAINTENANCE)
     Route: 065
     Dates: start: 2019, end: 2020
  2. THYMO [Suspect]
     Active Substance: HERBALS
     Indication: RENAL TRANSPLANT
     Dosage: UNK (INDUCTION)
     Route: 065
     Dates: start: 2019
  3. LOPINAVIR/RITONAVIR [Interacting]
     Active Substance: LOPINAVIR\RITONAVIR
     Indication: COVID-19 PNEUMONIA
     Dosage: UNK
     Route: 065
     Dates: start: 2020
  4. TACROLIMUS. [Interacting]
     Active Substance: TACROLIMUS
     Dosage: 0.5 MILLIGRAM, BID (RE?INITIATED)
     Route: 065
     Dates: start: 2020
  5. MYCOPHENOLATE MOFETIL. [Suspect]
     Active Substance: MYCOPHENOLATE MOFETIL
     Indication: RENAL TRANSPLANT
     Dosage: UNK (MAINTENANCE)
     Route: 065
     Dates: start: 2019, end: 2020

REACTIONS (12)
  - COVID-19 [Recovered/Resolved]
  - COVID-19 pneumonia [Recovered/Resolved]
  - Inflammation [Recovered/Resolved]
  - Drug interaction [Unknown]
  - Diarrhoea [Unknown]
  - Drug level increased [Recovered/Resolved]
  - Dyspnoea [Recovered/Resolved]
  - Pyrexia [Recovered/Resolved]
  - Myalgia [Unknown]
  - Acute kidney injury [Unknown]
  - Cough [Recovered/Resolved]
  - Lung opacity [Recovered/Resolved]

NARRATIVE: CASE EVENT DATE: 2020
